FAERS Safety Report 12257341 (Version 1)
Quarter: 2016Q2

REPORT INFORMATION
  Report Type: Spontaneous
  Country: US (occurrence: None)
  Receive Date: 20160411
  Receipt Date: 20160411
  Transmission Date: 20160815
  Serious: Yes (Other)
  Sender: FDA-Public Use
  Company Number: None

PATIENT
  Age: 71 Year
  Sex: Female
  Weight: 77.11 kg

DRUGS (9)
  1. FISH OIL [Concomitant]
     Active Substance: FISH OIL
  2. AMLODIPINE [Concomitant]
     Active Substance: AMLODIPINE BESYLATE
  3. ADVAIR HFA [Suspect]
     Active Substance: FLUTICASONE PROPIONATE\SALMETEROL XINAFOATE
     Indication: CHRONIC OBSTRUCTIVE PULMONARY DISEASE
     Dosage: 2 PUFFS TWICE DAILY BY MOUTH
     Route: 048
     Dates: start: 20160114, end: 20160126
  4. DULERA [Concomitant]
     Active Substance: FORMOTEROL FUMARATE DIHYDRATE\MOMETASONE FUROATE
  5. VITAMIN D [Concomitant]
     Active Substance: CHOLECALCIFEROL
  6. LEVOTHYROXINE. [Concomitant]
     Active Substance: LEVOTHYROXINE
  7. POTASSIUM [Concomitant]
     Active Substance: POTASSIUM
  8. OLANZAPINE. [Concomitant]
     Active Substance: OLANZAPINE
  9. SIMVASTATIN. [Concomitant]
     Active Substance: SIMVASTATIN

REACTIONS (12)
  - Throat irritation [None]
  - Dizziness [None]
  - Chills [None]
  - Fungal infection [None]
  - Fatigue [None]
  - Decreased appetite [None]
  - Headache [None]
  - Pharyngitis [None]
  - Pyrexia [None]
  - Nervousness [None]
  - Presyncope [None]
  - Chest pain [None]
